FAERS Safety Report 4771295-X (Version None)
Quarter: 2005Q3

REPORT INFORMATION
  Report Type: 
  Country: None (occurrence: None)
  Receive Date: 20050915
  Receipt Date: 20050912
  Transmission Date: 20060218
  Serious: Yes (Hospitalization)
  Sender: FDA-Public Use
  Company Number: SE-MERCK-0509SWE00001

PATIENT
  Age: 85 Year
  Sex: Female

DRUGS (15)
  1. COZAAR [Suspect]
     Indication: CARDIAC DISORDER
     Route: 048
     Dates: end: 20050610
  2. COZAAR [Suspect]
     Route: 048
     Dates: start: 20050620
  3. DIGOXIN [Suspect]
     Indication: ATRIAL FIBRILLATION
     Route: 048
     Dates: end: 20050610
  4. BENDROFLUMETHIAZIDE [Suspect]
     Indication: CARDIAC DISORDER
     Route: 048
     Dates: end: 20050610
  5. BENDROFLUMETHIAZIDE [Suspect]
     Route: 048
     Dates: start: 20050620
  6. SPIRONOLACTONE [Suspect]
     Indication: CARDIAC DISORDER
     Route: 048
     Dates: end: 20050610
  7. BISOPROLOL [Concomitant]
     Route: 065
  8. ATORVASTATIN CALCIUM [Concomitant]
     Route: 065
  9. FERROUS FUMARATE [Concomitant]
     Route: 065
  10. CLEMASTINE FUMARATE [Concomitant]
     Route: 065
  11. ASPIRIN [Concomitant]
     Route: 065
  12. FUROSEMIDE [Concomitant]
     Route: 065
  13. ALLOPURINOL [Concomitant]
     Route: 065
  14. LACTULOSE [Concomitant]
     Route: 065
  15. CALCIUM CARBONATE AND CHOLECALCIFEROL [Concomitant]
     Route: 065

REACTIONS (9)
  - ANOREXIA [None]
  - ATRIAL FIBRILLATION [None]
  - BLOOD CREATININE INCREASED [None]
  - C-REACTIVE PROTEIN INCREASED [None]
  - CARDIOACTIVE DRUG LEVEL INCREASED [None]
  - CONFUSIONAL STATE [None]
  - HAEMOGLOBIN DECREASED [None]
  - HALLUCINATION [None]
  - VOMITING [None]
